FAERS Safety Report 8799705 (Version 3)
Quarter: 2012Q4

REPORT INFORMATION
  Report Type: Report from Study
  Country: BE (occurrence: BE)
  Receive Date: 20120919
  Receipt Date: 20121114
  Transmission Date: 20130627
  Serious: Yes (Hospitalization, Other)
  Sender: FDA-Public Use
  Company Number: BE-009507513-1208BEL010586

PATIENT
  Age: 28 Year
  Sex: Female
  Weight: 49.5 kg

DRUGS (26)
  1. PRE TRIAL THERAPY [Suspect]
     Indication: CANDIDIASIS
     Dosage: 300.00 mg, qd
     Route: 042
  2. NEORAL [Concomitant]
     Indication: PROPHYLAXIS
     Dosage: 75 mg, prn
     Route: 042
     Dates: start: 20120711, end: 20120713
  3. NEORAL SANDIMMUN [Concomitant]
     Dosage: 65 mg, prn
     Route: 042
     Dates: start: 20120714
  4. NEORAL SANDIMMUN [Concomitant]
     Dosage: 70 mg, prn
     Route: 042
     Dates: start: 20120715
  5. NEORAL SANDIMMUN [Concomitant]
     Dosage: 70 mg, prn
     Route: 042
     Dates: start: 20120717, end: 20120718
  6. NEORAL SANDIMMUN [Concomitant]
     Dosage: 80 mg, prn
     Route: 042
     Dates: start: 20120719
  7. NEORAL SANDIMMUN [Concomitant]
     Dosage: 120 mg, qd
     Route: 042
     Dates: start: 20120720, end: 20120723
  8. NEORAL SANDIMMUN [Concomitant]
     Dosage: 65 mg, prn
     Route: 042
     Dates: start: 20120716
  9. NEORAL SANDIMMUN [Concomitant]
     Dosage: 115 mg, prn
     Route: 042
     Dates: start: 20120728, end: 20120728
  10. NEORAL SANDIMMUN [Concomitant]
     Dosage: 65 mg, prn
     Route: 042
     Dates: start: 20120714
  11. NEORAL SANDIMMUN [Concomitant]
     Dosage: 110 mg, prn
     Route: 042
     Dates: start: 20120724, end: 20120725
  12. NEORAL SANDIMMUN [Concomitant]
     Dosage: 115 mg, prn
     Route: 042
     Dates: start: 20120726
  13. NEORAL SANDIMMUN [Concomitant]
     Dosage: 110 mg, prn
     Route: 042
     Dates: start: 20120727
  14. NEORAL SANDIMMUN [Concomitant]
     Dosage: 100 mg, prn
     Route: 042
     Dates: start: 20120728, end: 20120729
  15. NEORAL SANDIMMUN [Concomitant]
     Dosage: 85 mg, prn
     Route: 042
     Dates: start: 20120730, end: 20120731
  16. NEORAL SANDIMMUN [Concomitant]
     Dosage: 90 mg, prn
     Route: 042
     Dates: start: 20120801, end: 20120802
  17. NEORAL SANDIMMUN [Concomitant]
     Dosage: 140 mg, prn
     Route: 042
     Dates: start: 20120803, end: 20120804
  18. NEORAL SANDIMMUN [Concomitant]
     Dosage: 100 mg, prn
     Route: 042
     Dates: start: 20120805
  19. NEORAL SANDIMMUN [Concomitant]
     Dosage: 80 mg, prn
     Route: 042
     Dates: start: 20120806
  20. NEORAL [Concomitant]
     Indication: PROPHYLAXIS
     Dosage: 100 mg, prn
     Route: 048
     Dates: start: 20120806
  21. NEORAL [Concomitant]
     Dosage: 2*100 mg+2*200 mg
     Route: 048
     Dates: start: 20120807, end: 20120807
  22. NEORAL [Concomitant]
     Dosage: 200 mg+150 mg
     Route: 048
     Dates: start: 20120808, end: 20120808
  23. NEORAL [Concomitant]
     Dosage: 2*150 mg
     Route: 048
     Dates: start: 20120809, end: 20120809
  24. NEORAL [Concomitant]
     Dosage: 150 mg, prn
     Route: 048
     Dates: start: 20120810, end: 20120810
  25. NEORAL [Concomitant]
     Dosage: 100 mg, prn
     Route: 048
     Dates: start: 20120813, end: 20120813
  26. NEORAL [Concomitant]
     Dosage: 100 mg, prn
     Route: 048
     Dates: start: 20120817, end: 20120817

REACTIONS (3)
  - Systemic candida [Recovered/Resolved]
  - Cytomegalovirus infection [Not Recovered/Not Resolved]
  - Endocarditis [Recovered/Resolved]
